FAERS Safety Report 14957944 (Version 1)
Quarter: 2018Q2

REPORT INFORMATION
  Report Type: Report from Study
  Country: CA (occurrence: CA)
  Receive Date: 20180531
  Receipt Date: 20180531
  Transmission Date: 20180711
  Serious: Yes (Hospitalization)
  Sender: FDA-Public Use
  Company Number: CA-JNJFOC-20180510031

PATIENT
  Age: 56 Year
  Sex: Female
  Weight: 106.8 kg

DRUGS (1)
  1. SIMPONI [Suspect]
     Active Substance: GOLIMUMAB
     Indication: PSORIATIC ARTHROPATHY
     Dosage: STRENGTH = 50 MG
     Route: 058
     Dates: start: 20150702, end: 20180528

REACTIONS (5)
  - Pericardial effusion [Not Recovered/Not Resolved]
  - Off label use [Unknown]
  - B-cell lymphoma [Unknown]
  - Product use issue [Unknown]
  - Pleural effusion [Unknown]

NARRATIVE: CASE EVENT DATE: 20150702
